FAERS Safety Report 25254543 (Version 1)
Quarter: 2025Q2

REPORT INFORMATION
  Report Type: Spontaneous
  Country: FR (occurrence: FR)
  Receive Date: 20250430
  Receipt Date: 20250430
  Transmission Date: 20250716
  Serious: Yes (Other)
  Sender: CHEPLAPHARM
  Company Number: None

PATIENT
  Age: 43 Year
  Sex: Female

DRUGS (4)
  1. OLANZAPINE [Suspect]
     Active Substance: OLANZAPINE
  2. CYAMEMAZINE [Suspect]
     Active Substance: CYAMEMAZINE
  3. TERALITHE [Suspect]
     Active Substance: LITHIUM CARBONATE
  4. LORMETAZEPAM [Suspect]
     Active Substance: LORMETAZEPAM

REACTIONS (2)
  - Drug abuse [Not Recovered/Not Resolved]
  - Pharmaceutical nomadism [Not Recovered/Not Resolved]
